FAERS Safety Report 18634577 (Version 1)
Quarter: 2020Q4

REPORT INFORMATION
  Report Type: Spontaneous
  Country: US (occurrence: US)
  Receive Date: 20201218
  Receipt Date: 20201218
  Transmission Date: 20210114
  Serious: Yes (Other)
  Sender: FDA-Public Use
  Company Number: None

PATIENT
  Age: 66 Year
  Sex: Female
  Weight: 71.1 kg

DRUGS (7)
  1. OTEZLA [Concomitant]
     Active Substance: APREMILAST
  2. LEVOTHYROXINE. [Concomitant]
     Active Substance: LEVOTHYROXINE
  3. SERTRALINE [Concomitant]
     Active Substance: SERTRALINE HYDROCHLORIDE
  4. PANTOPRAZOLE [Concomitant]
     Active Substance: PANTOPRAZOLE
  5. VITAMIN D3 [Concomitant]
     Active Substance: CHOLECALCIFEROL
  6. K2 [Concomitant]
     Active Substance: JWH-018
  7. BUDESONIDE 3MG CPEP. GENERIC ENTOCORT EC 3 MG. [Suspect]
     Active Substance: BUDESONIDE
     Indication: DIARRHOEA
     Dosage: ?          QUANTITY:3 CAPSULE(S);?
     Route: 048

REACTIONS (4)
  - Heart rate irregular [None]
  - Blood pressure fluctuation [None]
  - Dizziness [None]
  - Tremor [None]

NARRATIVE: CASE EVENT DATE: 20201211
